FAERS Safety Report 26198487 (Version 1)
Quarter: 2025Q4

REPORT INFORMATION
  Report Type: Spontaneous
  Country: US (occurrence: US)
  Receive Date: 20251224
  Receipt Date: 20251224
  Transmission Date: 20260117
  Serious: No
  Sender: B. BRAUN MEDICAL INC.
  Company Number: US-B. Braun Medical Inc.-US-BBM-202504887

PATIENT
  Age: 26 Year
  Sex: Female
  Weight: 69.4 kg

DRUGS (1)
  1. BUPIVACAINE HYDROCHLORIDE [Suspect]
     Active Substance: BUPIVACAINE HYDROCHLORIDE
     Indication: Surgery

REACTIONS (3)
  - Drug ineffective [Unknown]
  - Anaesthetic complication [Unknown]
  - Maternal exposure timing unspecified [Unknown]
